APPROVED DRUG PRODUCT: CEFADROXIL
Active Ingredient: CEFADROXIL/CEFADROXIL HEMIHYDRATE
Strength: EQ 500MG BASE
Dosage Form/Route: CAPSULE;ORAL
Application: A063017 | Product #001
Applicant: PUREPAC PHARMACEUTICAL CO
Approved: Jan 5, 1989 | RLD: No | RS: No | Type: DISCN